FAERS Safety Report 8028485-2 (Version None)
Quarter: 2012Q1

REPORT INFORMATION
  Report Type: 
  Country: None (occurrence: None)
  Receive Date: 20120106
  Receipt Date: 20110320
  Transmission Date: 20120608
  Serious: No
  Sender: FDA-Public Use
  Company Number: -MYLANLABS-2011S1005961

PATIENT
  Sex: Female

DRUGS (1)
  1. CETIRIZINE HYDROCHLORIDE [Suspect]
     Dosage: TOOK 2 10MG BY ACCIDENT X 1 - BELIEVEING THEM TO BE TYLENOL
     Route: 048

REACTIONS (2)
  - NO ADVERSE EVENT [None]
  - WRONG DRUG ADMINISTERED [None]
